FAERS Safety Report 9220739 (Version 2)
Quarter: 2013Q2

REPORT INFORMATION
  Report Type: Spontaneous
  Country: US (occurrence: US)
  Receive Date: 20130409
  Receipt Date: 20130606
  Transmission Date: 20140414
  Serious: No
  Sender: FDA-Public Use
  Company Number: US-PFIZER INC-2013107490

PATIENT
  Age: 76 Year
  Sex: Female

DRUGS (3)
  1. DETROL LA [Suspect]
     Indication: HYPERTONIC BLADDER
     Dosage: 4 MG, DAILY
     Route: 048
     Dates: start: 20071108
  2. DETROL LA [Suspect]
     Indication: URINARY INCONTINENCE
  3. ADVIL [Concomitant]
     Dosage: UNK

REACTIONS (2)
  - Seasonal allergy [Not Recovered/Not Resolved]
  - Nasopharyngitis [Not Recovered/Not Resolved]
